FAERS Safety Report 25029491 (Version 1)
Quarter: 2025Q1

REPORT INFORMATION
  Report Type: Spontaneous
  Country: ES (occurrence: ES)
  Receive Date: 20250303
  Receipt Date: 20250303
  Transmission Date: 20250408
  Serious: Yes (Other)
  Sender: JOHNSON AND JOHNSON
  Company Number: ES-VIIV HEALTHCARE-ES2025EME023105

PATIENT
  Age: 55 Year
  Sex: Female

DRUGS (2)
  1. RILPIVIRINE [Suspect]
     Active Substance: RILPIVIRINE
     Indication: Product used for unknown indication
     Route: 030
     Dates: start: 20240226, end: 20250102
  2. VOCABRIA [Suspect]
     Active Substance: CABOTEGRAVIR SODIUM
     Indication: Product used for unknown indication
     Route: 030
     Dates: start: 20240226, end: 20250102

REACTIONS (1)
  - Thrombocytopenia [Unknown]
